FAERS Safety Report 12927233 (Version 1)
Quarter: 2016Q4

REPORT INFORMATION
  Report Type: Spontaneous
  Country: BR (occurrence: BR)
  Receive Date: 20161109
  Receipt Date: 20161109
  Transmission Date: 20170207
  Serious: Yes (Other)
  Sender: FDA-Public Use
  Company Number: BR-ABBVIE-16P-020-1776198-00

PATIENT
  Age: 2 Year
  Sex: Female
  Weight: 16.5 kg

DRUGS (2)
  1. KLARICID [Suspect]
     Active Substance: CLARITHROMYCIN
     Indication: PRODUCTIVE COUGH
  2. KLARICID [Suspect]
     Active Substance: CLARITHROMYCIN
     Indication: COUGH
     Route: 048
     Dates: start: 20161019

REACTIONS (15)
  - Psychological trauma [Not Recovered/Not Resolved]
  - Gastric disorder [Recovering/Resolving]
  - Abdominal pain upper [Unknown]
  - Toxicity to various agents [Unknown]
  - Stomatitis [Not Recovered/Not Resolved]
  - Swelling face [Unknown]
  - Pruritus allergic [Unknown]
  - Product taste abnormal [Recovered/Resolved]
  - Drug dose omission [Unknown]
  - Dermatitis allergic [Recovering/Resolving]
  - Mouth swelling [Recovering/Resolving]
  - Eye swelling [Recovering/Resolving]
  - Vomiting [Unknown]
  - Drug hypersensitivity [Unknown]
  - Erythema [Unknown]

NARRATIVE: CASE EVENT DATE: 201610
